FAERS Safety Report 6362823-1 (Version None)
Quarter: 2009Q3

REPORT INFORMATION
  Report Type: 
  Country: None (occurrence: None)
  Receive Date: 20090919
  Receipt Date: 20090610
  Transmission Date: 20100115
  Serious: No
  Sender: FDA-Public Use
  Company Number: US-ABBOTT-09P-163-0579272-00

PATIENT
  Sex: Female
  Weight: 78.996 kg

DRUGS (13)
  1. HUMIRA [Suspect]
     Indication: ANKYLOSING SPONDYLITIS
     Route: 058
     Dates: start: 20071011
  2. LEVOTHYROXINE SODIUM [Concomitant]
     Indication: THYROID DISORDER
     Route: 048
  3. SULINDAC [Concomitant]
     Indication: SWELLING
     Route: 048
  4. SULINDAC [Concomitant]
     Indication: INFLAMMATION
  5. COLPIDEM [Concomitant]
     Indication: INSOMNIA
     Route: 048
  6. HYDROCODONE BITARTRATE AND ACETAMINOPHEN [Concomitant]
     Indication: PAIN
     Dosage: 10MG/500MG, 3 IN 1 DAYS
     Route: 048
  7. TRIAMTERENE AND HYDROCHLOROTHIAZIDE [Concomitant]
     Indication: FLUID RETENTION
     Dosage: 37.5MG/25MG, 1 IN 1 DAYS
     Route: 048
  8. BONIVA [Concomitant]
     Indication: DRUG USE FOR UNKNOWN INDICATION
     Route: 048
  9. GLUCOSAMINE/CHONDROITIN [Concomitant]
     Indication: MEDICAL DIET
     Route: 048
  10. PRILOSEC [Concomitant]
     Indication: DYSPEPSIA
     Dosage: OTC, AS NEEDED
     Route: 048
  11. TUMS [Concomitant]
     Indication: DYSPEPSIA
     Route: 048
  12. MULTI-VITAMINS [Concomitant]
     Indication: VITAMIN SUPPLEMENTATION
  13. FOLIC ACID [Concomitant]
     Indication: VITAMIN SUPPLEMENTATION

REACTIONS (4)
  - INJECTION SITE ERYTHEMA [None]
  - INJECTION SITE HAEMATOMA [None]
  - INJECTION SITE PAIN [None]
  - INJECTION SITE SWELLING [None]
